FAERS Safety Report 12133204 (Version 2)
Quarter: 2016Q2

REPORT INFORMATION
  Report Type: Spontaneous
  Country: GR (occurrence: GR)
  Receive Date: 20160301
  Receipt Date: 20160405
  Transmission Date: 20160815
  Serious: Yes (Other)
  Sender: FDA-Public Use
  Company Number: GR-ROCHE-1716065

PATIENT
  Age: 44 Year
  Sex: Female

DRUGS (5)
  1. T4 [Concomitant]
     Active Substance: LEVOTHYROXINE
     Route: 065
  2. PREZAL [Suspect]
     Active Substance: LANSOPRAZOLE
     Indication: PRODUCT USED FOR UNKNOWN INDICATION
     Route: 065
  3. PREDNISONE. [Concomitant]
     Active Substance: PREDNISONE
  4. XOLAIR [Suspect]
     Active Substance: OMALIZUMAB
     Route: 058
  5. XOLAIR [Suspect]
     Active Substance: OMALIZUMAB
     Indication: CHRONIC SPONTANEOUS URTICARIA
     Route: 058

REACTIONS (5)
  - Chronic spontaneous urticaria [Unknown]
  - Maternal exposure during pregnancy [Unknown]
  - Hormone level abnormal [Unknown]
  - Omphalorrhexis [Unknown]
  - Premature delivery [Unknown]
